FAERS Safety Report 7960410-2 (Version None)
Quarter: 2011Q4

REPORT INFORMATION
  Report Type: 
  Country: None (occurrence: None)
  Receive Date: 20111206
  Receipt Date: 20111122
  Transmission Date: 20120403
  Serious: Yes (Other)
  Sender: FDA-Public Use
  Company Number: FR-VALEANT-2011VX002721

PATIENT
  Age: 34 Year
  Sex: Male
  Weight: 69 kg

DRUGS (3)
  1. ACETAMINOPHEN [Concomitant]
     Route: 048
  2. FLUOROURACIL [Suspect]
     Route: 061
     Dates: start: 20110701, end: 20110909
  3. FLUOROURACIL [Suspect]
     Route: 061
     Dates: start: 20111025

REACTIONS (4)
  - NAUSEA [None]
  - URINE COLOUR ABNORMAL [None]
  - CYTOLYTIC HEPATITIS [None]
  - FATIGUE [None]
